FAERS Safety Report 4726986-3 (Version None)
Quarter: 2005Q3

REPORT INFORMATION
  Report Type: 
  Country: None (occurrence: None)
  Receive Date: 20050728
  Receipt Date: 20050718
  Transmission Date: 20060218
  Serious: Yes (Hospitalization)
  Sender: FDA-Public Use
  Company Number: FR-JNJFOC-20050703614

PATIENT
  Age: 32 Year
  Sex: Female
  Weight: 57 kg

DRUGS (8)
  1. REMICADE [Suspect]
     Route: 042
  2. REMICADE [Suspect]
     Indication: RHEUMATOID ARTHRITIS
     Route: 042
  3. CORTANCYL [Concomitant]
     Route: 065
  4. DI-ANTALVIC [Concomitant]
     Route: 065
  5. DI-ANTALVIC [Concomitant]
     Route: 065
  6. DOLIPRANE [Concomitant]
     Route: 065
  7. METHOTREXATE [Concomitant]
     Route: 065
  8. SPECIAFOLDINE [Concomitant]
     Route: 065

REACTIONS (7)
  - CHILLS [None]
  - DIZZINESS [None]
  - INFUSION RELATED REACTION [None]
  - NAUSEA [None]
  - PYREXIA [None]
  - URTICARIA [None]
  - VOMITING [None]
